FAERS Safety Report 5470210-3 (Version None)
Quarter: 2007Q3

REPORT INFORMATION
  Report Type: 
  Country: None (occurrence: None)
  Receive Date: 20070924
  Receipt Date: 20070914
  Transmission Date: 20080115
  Serious: Yes (Other)
  Sender: FDA-Public Use
  Company Number: 2007SP018682

PATIENT
  Age: 57 Year
  Sex: Male

DRUGS (8)
  1. PEG-INTRON [Suspect]
     Indication: HEPATITIS B
     Dosage: SC
     Route: 058
     Dates: start: 20060621, end: 20070516
  2. RIBAVIRIN [Suspect]
     Indication: HEPATITIS B
     Dosage: PO
     Route: 048
     Dates: start: 20060621, end: 20070516
  3. IBUPROFEN [Suspect]
     Indication: ARTHRALGIA
  4. CLONAZEPAM [Concomitant]
  5. TEMAZEPAM [Concomitant]
  6. TYLENOL W/ CODEINE NO. 3 [Concomitant]
  7. ZOLOFT [Concomitant]
  8. HYDROXYZINE HCL [Concomitant]

REACTIONS (5)
  - CRYOGLOBULINAEMIA [None]
  - DIZZINESS [None]
  - HAEMATEMESIS [None]
  - RASH [None]
  - RED BLOOD CELL COUNT DECREASED [None]
